FAERS Safety Report 16531337 (Version 1)
Quarter: 2019Q3

REPORT INFORMATION
  Report Type: Report from Study
  Country: CA (occurrence: CA)
  Receive Date: 20190704
  Receipt Date: 20190704
  Transmission Date: 20191004
  Serious: Yes (Hospitalization, Other)
  Sender: FDA-Public Use
  Company Number: CA-TEVA-2019-CA-1069173

PATIENT
  Age: 76 Year
  Sex: Female

DRUGS (9)
  1. SANDOSTATIN [Suspect]
     Active Substance: OCTREOTIDE ACETATE
     Route: 030
  2. PANTOPRAZOLE [Suspect]
     Active Substance: PANTOPRAZOLE
     Indication: PRODUCT USED FOR UNKNOWN INDICATION
     Route: 065
  3. WARFARIN [Concomitant]
     Active Substance: WARFARIN
     Indication: PRODUCT USED FOR UNKNOWN INDICATION
     Route: 065
  4. SANDOSTATIN [Suspect]
     Active Substance: OCTREOTIDE ACETATE
     Indication: CARCINOID TUMOUR
     Route: 030
  5. ALLOPURINOL. [Concomitant]
     Active Substance: ALLOPURINOL
     Indication: PRODUCT USED FOR UNKNOWN INDICATION
     Route: 065
  6. METFORMIN [Suspect]
     Active Substance: METFORMIN HYDROCHLORIDE
     Indication: PRODUCT USED FOR UNKNOWN INDICATION
     Route: 065
  7. CHLORTHALIDONE. [Concomitant]
     Active Substance: CHLORTHALIDONE
     Indication: PRODUCT USED FOR UNKNOWN INDICATION
     Route: 065
  8. BISOPROLOL [Suspect]
     Active Substance: BISOPROLOL
     Indication: PRODUCT USED FOR UNKNOWN INDICATION
     Route: 065
  9. SANDOSTATIN [Suspect]
     Active Substance: OCTREOTIDE ACETATE
     Route: 058

REACTIONS (38)
  - Arthralgia [Recovered/Resolved]
  - Asthenia [Recovered/Resolved]
  - Atrial fibrillation [Recovered/Resolved]
  - Blood pressure systolic increased [Recovered/Resolved]
  - Dizziness [Recovered/Resolved]
  - Urinary tract infection [Recovered/Resolved]
  - Vomiting [Recovered/Resolved]
  - Wound [Recovered/Resolved]
  - Choking [Recovered/Resolved]
  - Gait disturbance [Recovered/Resolved]
  - Injection site erythema [Recovered/Resolved]
  - Injection site pain [Recovered/Resolved]
  - Joint swelling [Recovered/Resolved]
  - Oedema peripheral [Recovered/Resolved]
  - Rash [Recovered/Resolved]
  - Blood glucose fluctuation [Recovered/Resolved]
  - Cardiac failure congestive [Recovered/Resolved]
  - Contusion [Recovered/Resolved]
  - Facial paralysis [Recovered/Resolved]
  - Heart rate irregular [Recovered/Resolved]
  - Breast pain [Recovered/Resolved]
  - Nausea [Recovered/Resolved]
  - Seizure [Recovered/Resolved]
  - Neck pain [Recovered/Resolved]
  - Abdominal pain [Recovered/Resolved]
  - Diarrhoea [Recovered/Resolved]
  - Discomfort [Recovered/Resolved]
  - Fall [Recovered/Resolved]
  - Flatulence [Recovered/Resolved]
  - Injection site swelling [Recovered/Resolved]
  - Pain in extremity [Recovered/Resolved]
  - Blood pressure increased [Recovered/Resolved]
  - Chest pain [Recovered/Resolved]
  - Dyspnoea [Recovered/Resolved]
  - Neck mass [Recovered/Resolved]
  - Peripheral swelling [Recovered/Resolved]
  - Rheumatoid arthritis [Recovered/Resolved]
  - Speech disorder [Recovered/Resolved]
